FAERS Safety Report 15030345 (Version 3)
Quarter: 2018Q3

REPORT INFORMATION
  Report Type: Report from Study
  Country: PL (occurrence: PL)
  Receive Date: 20180619
  Receipt Date: 20180917
  Transmission Date: 20181010
  Serious: Yes (Other)
  Sender: FDA-Public Use
  Company Number: PL-CHIESI USA INC.-PL-2018CHI000158

PATIENT
  Age: 1 Day
  Sex: Male
  Weight: .94 kg

DRUGS (6)
  1. CUROSURF [Suspect]
     Active Substance: PORACTANT ALFA
     Indication: NEONATAL RESPIRATORY DISTRESS SYNDROME
     Dosage: 2.25 ML, SINGLE
     Route: 039
     Dates: start: 20180520, end: 20180520
  2. PARACETAMOL [Concomitant]
     Active Substance: ACETAMINOPHEN
     Indication: ANALGESIC THERAPY
     Dosage: 18 MG, QD
     Route: 042
     Dates: start: 20180520, end: 20180601
  3. CAFFEINE CITRATE. [Concomitant]
     Active Substance: CAFFEINE CITRATE
     Indication: PRODUCT USED FOR UNKNOWN INDICATION
     Dosage: UNK
     Dates: start: 20180520, end: 20180726
  4. AMPICILLINUM                       /00000501/ [Concomitant]
     Indication: ANTIBIOTIC THERAPY
     Dosage: 100 MG, QD
     Route: 042
     Dates: start: 20180520, end: 20180528
  5. GENTAMICIN. [Concomitant]
     Active Substance: GENTAMICIN
     Indication: ANTIBIOTIC THERAPY
     Dosage: 6 MG, QD
     Route: 042
     Dates: start: 20180520, end: 20180526
  6. CUROSURF [Suspect]
     Active Substance: PORACTANT ALFA
     Dosage: 120 MG, SINGLE
     Route: 007
     Dates: start: 20180521, end: 20180521

REACTIONS (3)
  - Drug administration error [Recovered/Resolved]
  - Inappropriate schedule of drug administration [Recovered/Resolved]
  - Neonatal hypoxia [Recovered/Resolved]

NARRATIVE: CASE EVENT DATE: 20180520
